FAERS Safety Report 6845644-2 (Version None)
Quarter: 2010Q3

REPORT INFORMATION
  Report Type: 
  Country: None (occurrence: None)
  Receive Date: 20100715
  Receipt Date: 20070824
  Transmission Date: 20110219
  Serious: No
  Sender: FDA-Public Use
  Company Number: US-PFIZER INC-2007071984

PATIENT
  Sex: Female
  Weight: 90.7 kg

DRUGS (3)
  1. CHANTIX [Suspect]
     Indication: SMOKING CESSATION THERAPY
     Dates: start: 20070601
  2. EFFEXOR [Concomitant]
  3. SEROQUEL [Concomitant]

REACTIONS (3)
  - DYSPHAGIA [None]
  - MOUTH ULCERATION [None]
  - NAUSEA [None]
